FAERS Safety Report 6939566-6 (Version None)
Quarter: 2010Q3

REPORT INFORMATION
  Report Type: 
  Country: None (occurrence: None)
  Receive Date: 20100824
  Receipt Date: 20100810
  Transmission Date: 20110219
  Serious: Yes (Other)
  Sender: FDA-Public Use
  Company Number: PHHY2010US51856

PATIENT
  Sex: Female
  Weight: 38 kg

DRUGS (4)
  1. RECLAST [Suspect]
     Dosage: 5 MG
     Dates: start: 20100401
  2. PERCOCET [Concomitant]
     Indication: PAIN
     Dosage: 10/325  ORAL EVERY 4-6 HOURS
     Route: 048
  3. SPIRIVA [Concomitant]
     Indication: CHRONIC OBSTRUCTIVE PULMONARY DISEASE
     Dosage: 1 INHALATION DAILY
     Route: 048
  4. VIVELLE-DOT [Concomitant]
     Indication: HORMONE REPLACEMENT THERAPY
     Dosage: 1 PATCHXWEEKLY
     Route: 048

REACTIONS (3)
  - BONE DISORDER [None]
  - PAIN IN JAW [None]
  - TOOTH LOSS [None]
